FAERS Safety Report 5053123-0 (Version None)
Quarter: 2006Q3

REPORT INFORMATION
  Report Type: 
  Country: None (occurrence: None)
  Receive Date: 20060711
  Receipt Date: 20060628
  Transmission Date: 20061208
  Serious: Yes (Hospitalization, Disabling)
  Sender: FDA-Public Use
  Company Number: 2006BI006765

PATIENT
  Age: 70 Year
  Sex: Female
  Weight: 65 kg

DRUGS (15)
  1. AVONEX [Suspect]
     Indication: MULTIPLE SCLEROSIS
     Dosage: 30 UG;QW;IM
     Route: 030
     Dates: start: 19990601
  2. AVONEX [Suspect]
     Indication: MULTIPLE SCLEROSIS
     Dosage: 30 UG;QW
  3. LIORESAL [Concomitant]
  4. EMSELEX [Concomitant]
  5. VALORON [Concomitant]
  6. IBUPROFEN [Concomitant]
  7. DURAGESIC-100 [Concomitant]
  8. SAROTEN [Concomitant]
  9. CLEXANE [Concomitant]
  10. FOSOMAX [Concomitant]
  11. TRAMADOL HCL [Concomitant]
  12. ZANTAC [Concomitant]
  13. LACRISIC [Concomitant]
  14. OSTEOPLUS [Concomitant]
  15. PANTOZOL [Concomitant]

REACTIONS (11)
  - ACCIDENT [None]
  - CONDITION AGGRAVATED [None]
  - ELECTROCARDIOGRAM POOR R-WAVE PROGRESSION [None]
  - FALL [None]
  - MUSCLE SPASTICITY [None]
  - NEURALGIA [None]
  - OSTEOARTHRITIS [None]
  - OSTEOPOROSIS [None]
  - POST PROCEDURAL COMPLICATION [None]
  - SPINAL COMPRESSION FRACTURE [None]
  - SURGICAL PROCEDURE REPEATED [None]
